FAERS Safety Report 4377773-X (Version None)
Quarter: 2004Q2

REPORT INFORMATION
  Report Type: 
  Country: None (occurrence: None)
  Receive Date: 20040615
  Receipt Date: 20040615
  Transmission Date: 20050107
  Serious: Yes (Other)
  Sender: FDA-Public Use
  Company Number: None

PATIENT
  Age: 68 Year
  Sex: Female
  Weight: 86.1834 kg

DRUGS (1)
  1. ZOCOR [Suspect]
     Dosage: 10 MG PO QD
     Route: 048
     Dates: start: 20030401, end: 20031101

REACTIONS (2)
  - BACK PAIN [None]
  - LIVER FUNCTION TEST ABNORMAL [None]
